FAERS Safety Report 4619871-9 (Version None)
Quarter: 2005Q1

REPORT INFORMATION
  Report Type: 
  Country: None (occurrence: None)
  Receive Date: 20050328
  Receipt Date: 20050316
  Transmission Date: 20050727
  Serious: Yes (Other)
  Sender: FDA-Public Use
  Company Number: US-JNJFOC-20050106591

PATIENT
  Sex: Male
  Weight: 75.75 kg

DRUGS (6)
  1. REMICADE [Suspect]
     Indication: ANKYLOSING SPONDYLITIS
     Route: 042
  2. AZULFIDINE [Concomitant]
     Indication: ANTIINFLAMMATORY THERAPY
     Dosage: 3
  3. CYCLOBENZAPRINE HCL [Concomitant]
  4. HYDROCODONE [Concomitant]
     Indication: PAIN
     Dosage: 10/500 EVERY 4 HOURS
  5. NEXIUM [Concomitant]
  6. ZANTAC [Concomitant]

REACTIONS (9)
  - COUGH [None]
  - DIARRHOEA [None]
  - DYSPNOEA [None]
  - HYDROCEPHALUS [None]
  - IATROGENIC INJURY [None]
  - INFUSION RELATED REACTION [None]
  - RECTAL HAEMORRHAGE [None]
  - SACROILIITIS [None]
  - THROAT IRRITATION [None]
